FAERS Safety Report 13290125 (Version 1)
Quarter: 2017Q1

REPORT INFORMATION
  Report Type: Spontaneous
  Country: US (occurrence: US)
  Receive Date: 20170302
  Receipt Date: 20170302
  Transmission Date: 20170428
  Serious: No
  Sender: FDA-Public Use
  Company Number: US-GLAXOSMITHKLINE-US2017028926

PATIENT
  Age: 59 Year
  Sex: Female

DRUGS (3)
  1. ADVAIR DISKUS [Suspect]
     Active Substance: FLUTICASONE PROPIONATE\SALMETEROL XINAFOATE
     Indication: PRODUCT USED FOR UNKNOWN INDICATION
     Dosage: 250/50
     Route: 055
  2. ADVAIR DISKUS [Suspect]
     Active Substance: FLUTICASONE PROPIONATE\SALMETEROL XINAFOATE
     Dosage: 500/50
     Route: 055
     Dates: start: 20170228
  3. PULMICORT TURBUHALER [Suspect]
     Active Substance: BUDESONIDE
     Indication: PRODUCT USED FOR UNKNOWN INDICATION
     Dosage: UNK

REACTIONS (13)
  - Hyperhidrosis [Unknown]
  - Catheterisation cardiac [Unknown]
  - Inappropriate schedule of drug administration [Unknown]
  - Eye pain [Unknown]
  - Pain [Unknown]
  - Ill-defined disorder [Unknown]
  - Dyspnoea [Unknown]
  - Dysphonia [Unknown]
  - Wheezing [Unknown]
  - Intentional underdose [Unknown]
  - Cough [Unknown]
  - Chest discomfort [Unknown]
  - Chills [Unknown]

NARRATIVE: CASE EVENT DATE: 20170228
